FAERS Safety Report 7943052-4 (Version None)
Quarter: 2011Q4

REPORT INFORMATION
  Report Type: 
  Country: None (occurrence: None)
  Receive Date: 20111122
  Receipt Date: 20110624
  Transmission Date: 20120403
  Serious: Yes (Other)
  Sender: FDA-Public Use
  Company Number: PHHY2011US39720

PATIENT
  Age: 30 Year
  Sex: Female

DRUGS (6)
  1. DIAZEPAM (DIAZEPAM) -/-/2009 TO UNK [Concomitant]
  2. LORTAB (HYDROCODONE BITARTRATE, PARACETAMOL) -/-/2009 TO UNK [Concomitant]
  3. AMBIEN CR (ZOLPIDEM TARTRATE) -/-/2008 TO UNK [Concomitant]
  4. NUVARING (ETHINYLESTRADIOL, ETONOGESTREL) -/-/2004 TO UNK [Concomitant]
  5. GILENYA [Suspect]
     Indication: RELAPSING-REMITTING MULTIPLE SCLEROSIS
     Dosage: 0.5 MG, DAILY, ORAL
     Route: 048
     Dates: start: 20110505
  6. LISINOPRIL W/HYDROCHLOROTHIAZIDE (HYDROCHLOROTHIAZIDE, LISINOPRIL) -/- [Concomitant]

REACTIONS (3)
  - SOMNOLENCE [None]
  - FEELING COLD [None]
  - BRADYCARDIA [None]
